FAERS Safety Report 20676540 (Version 1)
Quarter: 2022Q2

REPORT INFORMATION
  Report Type: Spontaneous
  Country: US (occurrence: US)
  Receive Date: 20220405
  Receipt Date: 20220405
  Transmission Date: 20220721
  Serious: Yes (Other)
  Sender: FDA-Public Use
  Company Number: US-009507513-2203USA010748

PATIENT
  Age: 52 Year
  Sex: Male

DRUGS (2)
  1. NOXAFIL [Suspect]
     Active Substance: POSACONAZOLE
     Indication: Disseminated cryptococcosis
     Dosage: ORALLY DR TABLET
     Route: 048
     Dates: start: 20220108, end: 20220323
  2. AMBISOME [Suspect]
     Active Substance: AMPHOTERICIN B
     Indication: Disseminated cryptococcosis
     Dosage: THREE TIMES WEEKLY IV
     Route: 042

REACTIONS (8)
  - Disseminated cryptococcosis [Not Recovered/Not Resolved]
  - Peptic ulcer [Not Recovered/Not Resolved]
  - Drug ineffective [Not Recovered/Not Resolved]
  - Therapeutic response decreased [Not Recovered/Not Resolved]
  - Abdominal distension [Not Recovered/Not Resolved]
  - Pulmonary mass [Not Recovered/Not Resolved]
  - Weight gain poor [Not Recovered/Not Resolved]
  - Product use in unapproved indication [Unknown]

NARRATIVE: CASE EVENT DATE: 20220101
